FAERS Safety Report 9410596 (Version 1)
Quarter: 2013Q3

REPORT INFORMATION
  Report Type: Spontaneous
  Country: GB (occurrence: GB)
  Receive Date: 20130719
  Receipt Date: 20130719
  Transmission Date: 20140515
  Serious: Yes (Hospitalization)
  Sender: FDA-Public Use
  Company Number: GB-ACTAVIS-2013-12722

PATIENT
  Sex: 0

DRUGS (4)
  1. PARACETAMOL (UNKNOWN) [Suspect]
     Indication: PRODUCT USED FOR UNKNOWN INDICATION
     Dosage: UNK, UNKNOWN
     Route: 065
  2. CLOZAPINE (UNKNOWN) [Suspect]
     Indication: PRODUCT USED FOR UNKNOWN INDICATION
     Dosage: UNK, UNKNOWN
     Route: 048
     Dates: start: 20071115, end: 20080421
  3. CLOZAPINE (UNKNOWN) [Suspect]
     Dosage: UNK, UNKNOWN
     Route: 048
     Dates: start: 20080516, end: 20090122
  4. CLOZAPINE (UNKNOWN) [Suspect]
     Dosage: UNK, UNKNOWN
     Route: 048
     Dates: start: 20120806, end: 201306

REACTIONS (2)
  - Suicide attempt [Unknown]
  - Treatment noncompliance [Unknown]
